FAERS Safety Report 19364754 (Version 1)
Quarter: 2021Q2

REPORT INFORMATION
  Report Type: Spontaneous
  Country: US (occurrence: US)
  Receive Date: 20210603
  Receipt Date: 20210603
  Transmission Date: 20210717
  Serious: Yes (Other)
  Sender: FDA-Public Use
  Company Number: None

PATIENT
  Age: 48 Year
  Sex: Male
  Weight: 90.45 kg

DRUGS (2)
  1. CLONAZEPAM. [Concomitant]
     Active Substance: CLONAZEPAM
  2. ACAMPROSATE 333MG TABLETS [Suspect]
     Active Substance: ACAMPROSATE CALCIUM
     Indication: ALCOHOLISM
     Dosage: ?          QUANTITY:90 TABLET(S);OTHER FREQUENCY:3X^S A DAY;?
     Route: 048
     Dates: start: 20210602, end: 20210602

REACTIONS (3)
  - Anxiety [None]
  - Product communication issue [None]
  - Nervousness [None]

NARRATIVE: CASE EVENT DATE: 20210602
